FAERS Safety Report 12246020 (Version 1)
Quarter: 2016Q2

REPORT INFORMATION
  Report Type: Spontaneous
  Country: US (occurrence: None)
  Receive Date: 20160406
  Receipt Date: 20160406
  Transmission Date: 20160815
  Serious: Yes (Hospitalization)
  Sender: FDA-Public Use
  Company Number: None

PATIENT
  Age: 52 Year
  Sex: Female
  Weight: 70.4 kg

DRUGS (1)
  1. LEVOFLOXACIN UNKNOWN [Suspect]
     Active Substance: LEVOFLOXACIN
     Indication: PNEUMONIA
     Route: 048
     Dates: start: 20160201, end: 20160203

REACTIONS (4)
  - Anaemia [None]
  - Autoimmune haemolytic anaemia [None]
  - Blood count abnormal [None]
  - Cold sweat [None]

NARRATIVE: CASE EVENT DATE: 20160204
